FAERS Safety Report 26037828 (Version 1)
Quarter: 2025Q4

REPORT INFORMATION
  Report Type: Spontaneous
  Country: US (occurrence: US)
  Receive Date: 20251112
  Receipt Date: 20251112
  Transmission Date: 20260118
  Serious: Yes (Other)
  Sender: BRACCO
  Company Number: US-BRACCO-2025US02308

PATIENT
  Age: 52 Year
  Sex: Female

DRUGS (30)
  1. LUMASON [Suspect]
     Active Substance: SULFUR HEXAFLUORIDE
     Dosage: 3 ML, SINGLE
     Route: 042
     Dates: start: 20250407, end: 20250407
  2. LUMASON [Suspect]
     Active Substance: SULFUR HEXAFLUORIDE
     Dosage: 3 ML, SINGLE
     Route: 042
     Dates: start: 20250407, end: 20250407
  3. LUMASON [Suspect]
     Active Substance: SULFUR HEXAFLUORIDE
     Dosage: 3 ML, SINGLE
     Route: 042
     Dates: start: 20250407, end: 20250407
  4. ASPIRIN [Concomitant]
     Active Substance: ASPIRIN
     Dosage: 325 MG
  5. BRETHINE [Concomitant]
     Active Substance: TERBUTALINE SULFATE
  6. CYANOCOBALAMIN [Concomitant]
     Active Substance: CYANOCOBALAMIN
     Dosage: 1000 MICROGRAM
  7. DUONEB [Concomitant]
     Active Substance: ALBUTEROL SULFATE\IPRATROPIUM BROMIDE
     Dosage: 3 ML
  8. EFFIENT [Concomitant]
     Active Substance: PRASUGREL HYDROCHLORIDE
     Dosage: 10 MG
  9. FLONASE [Concomitant]
     Active Substance: FLUTICASONE PROPIONATE
     Dosage: 50 MCG
     Route: 045
  10. HEPARIN [Concomitant]
     Active Substance: HEPARIN SODIUM
  11. IMDUR [Concomitant]
     Active Substance: ISOSORBIDE MONONITRATE
     Dosage: 30 MG
  12. ISOPTIN [Concomitant]
     Active Substance: VERAPAMIL HYDROCHLORIDE
  13. ISOVUE 300 [Concomitant]
     Active Substance: IOPAMIDOL
  14. KLOR-CON M20 [Concomitant]
     Active Substance: POTASSIUM CHLORIDE
     Dosage: 20 MEQ
  15. LASIX [Concomitant]
     Active Substance: FUROSEMIDE
     Dosage: 40 MG
  16. LIDOCAINE [Concomitant]
     Active Substance: LIDOCAINE
  17. LIPITOR [Concomitant]
     Active Substance: ATORVASTATIN CALCIUM
     Dosage: 80 MG
  18. NITROGLYCERIN [Concomitant]
     Active Substance: NITROGLYCERIN
  19. PRILOSEC [Concomitant]
     Active Substance: OMEPRAZOLE MAGNESIUM
     Dosage: 20 MG
  20. PRINIVIL [Concomitant]
     Active Substance: LISINOPRIL
     Dosage: 20 MG
  21. PROAIR HFA [Concomitant]
     Active Substance: ALBUTEROL SULFATE
  22. ROBITUSSIN (GUAIFENESIN) [Concomitant]
     Active Substance: GUAIFENESIN
     Dosage: 100MG/5ML
     Route: 048
  23. SODIUM CHLORIDE [Concomitant]
     Active Substance: SODIUM CHLORIDE
     Route: 040
  24. SOLU-MEDROL [Concomitant]
     Active Substance: METHYLPREDNISOLONE SODIUM SUCCINATE
     Dosage: 125 UNK
  25. SPIRIVA RESPIMAT [Concomitant]
     Active Substance: TIOTROPIUM BROMIDE
     Dosage: 2.5 MCG
  26. SUBLIMAZE [Concomitant]
     Active Substance: FENTANYL CITRATE
  27. TOPROL XL [Concomitant]
     Active Substance: METOPROLOL SUCCINATE
     Dosage: 25 MG
  28. TORADOL [Concomitant]
     Active Substance: KETOROLAC TROMETHAMINE
     Dosage: 30 MG
  29. VERSED [Concomitant]
     Active Substance: MIDAZOLAM HYDROCHLORIDE
     Dosage: UNK
  30. VITAMIN D [Concomitant]
     Active Substance: VITAMIN D NOS
     Dosage: 50000 IU

REACTIONS (8)
  - Hypotension [Recovered/Resolved]
  - Dyspnoea [Recovered/Resolved]
  - Heart rate increased [Recovered/Resolved]
  - Feeling hot [Recovered/Resolved]
  - Hypoaesthesia oral [Recovered/Resolved]
  - Hypoaesthesia [Recovered/Resolved]
  - Choking sensation [Recovered/Resolved]
  - Vomiting [Recovered/Resolved]

NARRATIVE: CASE EVENT DATE: 20250407
